FAERS Safety Report 5781706-9 (Version None)
Quarter: 2008Q2

REPORT INFORMATION
  Report Type: 
  Country: None (occurrence: None)
  Receive Date: 20080623
  Receipt Date: 20070824
  Transmission Date: 20081010
  Serious: No
  Sender: FDA-Public Use
  Company Number: US-ASTRAZENECA-2007UW20260

PATIENT
  Age: 91 Year
  Weight: 63.5 kg

DRUGS (3)
  1. RHINOCORT [Suspect]
     Indication: MULTIPLE ALLERGIES
     Route: 045
     Dates: start: 20070601
  2. LISINOPRIL [Concomitant]
  3. LANOXIN [Concomitant]

REACTIONS (1)
  - VISUAL ACUITY REDUCED [None]
